FAERS Safety Report 6372624-6 (Version None)
Quarter: 2009Q3

REPORT INFORMATION
  Report Type: 
  Country: None (occurrence: None)
  Receive Date: 20090922
  Receipt Date: 20090922
  Transmission Date: 20100115
  Serious: Yes (Life-Threatening, Hospitalization, Disabling, Other)
  Sender: FDA-Public Use
  Company Number: None

PATIENT
  Age: 33 Year
  Sex: Female
  Weight: 61.2356 kg

DRUGS (2)
  1. DIAZEPAM [Suspect]
     Indication: NAUSEA
     Dosage: 25 MG BID PO
     Route: 048
     Dates: start: 20070105, end: 20090405
  2. PROMETHAZINE [Suspect]
     Indication: NAUSEA

REACTIONS (10)
  - APNOEA [None]
  - DYSARTHRIA [None]
  - FEELING DRUNK [None]
  - GAIT DISTURBANCE [None]
  - HALLUCINATION [None]
  - INSOMNIA [None]
  - LOSS OF CONSCIOUSNESS [None]
  - MEDICATION ERROR [None]
  - PAIN [None]
  - PRODUCT COLOUR ISSUE [None]
